FAERS Safety Report 5061926-1 (Version None)
Quarter: 2006Q3

REPORT INFORMATION
  Report Type: 
  Country: None (occurrence: None)
  Receive Date: 20060703
  Receipt Date: 20051215
  Transmission Date: 20061208
  Serious: No
  Sender: FDA-Public Use
  Company Number: 2005S1011992

PATIENT
  Age: 37 Year
  Sex: Female
  Weight: 94.8018 kg

DRUGS (6)
  1. CLOZAPINE [Suspect]
     Indication: PSYCHOTIC DISORDER
     Dosage: SEE IMAGE
     Route: 048
     Dates: start: 20030101
  2. CLOZAPINE [Suspect]
     Indication: PSYCHOTIC DISORDER
     Dosage: SEE IMAGE
     Route: 048
     Dates: start: 20030101
  3. BENZTROPINE MESYLATE [Concomitant]
  4. FLUOXETINE HYDROCHLORIDE [Concomitant]
  5. FERROUS SULFATE TAB [Concomitant]
  6. LISINOPRIL [Concomitant]

REACTIONS (1)
  - GRANULOCYTOPENIA [None]
